FAERS Safety Report 15723705 (Version 1)
Quarter: 2018Q4

REPORT INFORMATION
  Report Type: Spontaneous
  Country: US (occurrence: US)
  Receive Date: 20181214
  Receipt Date: 20181214
  Transmission Date: 20190205
  Serious: No
  Sender: FDA-Public Use
  Company Number: None

PATIENT
  Age: 66 Year
  Sex: Male
  Weight: 90 kg

DRUGS (1)
  1. CLOPIDGREL BISULFATE 75MG [Suspect]
     Active Substance: CLOPIDOGREL BISULFATE
     Indication: ANTICOAGULANT THERAPY
     Dosage: ?          QUANTITY:1 TABLET(S);?
     Route: 048
     Dates: start: 20181208, end: 20181214

REACTIONS (6)
  - Epistaxis [None]
  - Abdominal discomfort [None]
  - Headache [None]
  - Rash [None]
  - Product substitution issue [None]
  - Blood urine [None]

NARRATIVE: CASE EVENT DATE: 20181213
